FAERS Safety Report 5055691-1 (Version None)
Quarter: 2006Q3

REPORT INFORMATION
  Report Type: 
  Country: None (occurrence: None)
  Receive Date: 20060714
  Receipt Date: 20060627
  Transmission Date: 20061208
  Serious: Yes (Hospitalization, Other)
  Sender: FDA-Public Use
  Company Number: US200606005675

PATIENT
  Age: 71 Year
  Sex: Male

DRUGS (3)
  1. HUMALOG [Suspect]
     Dosage: SEE IMAGE
     Dates: start: 20060201
  2. HUMULIN N [Suspect]
     Dosage: SEE IMAGE
     Dates: start: 19870101
  3. HUMULIN R [Suspect]
     Dates: start: 19870101, end: 20060201

REACTIONS (13)
  - BLOOD GLUCOSE INCREASED [None]
  - CATARACT [None]
  - DRUG INEFFECTIVE [None]
  - EYE INJURY [None]
  - FOOD ALLERGY [None]
  - JAW DISORDER [None]
  - LENS DISLOCATION [None]
  - OSTEOMYELITIS [None]
  - POST PROCEDURAL COMPLICATION [None]
  - RASH PRURITIC [None]
  - SCAB [None]
  - STRESS [None]
  - TOOTH DISORDER [None]
